FAERS Safety Report 14939643 (Version 5)
Quarter: 2019Q3

REPORT INFORMATION
  Report Type: Spontaneous
  Country: JP (occurrence: JP)
  Receive Date: 20180525
  Receipt Date: 20190918
  Transmission Date: 20191004
  Serious: Yes (Hospitalization, Other)
  Sender: FDA-Public Use
  Company Number: JP-ACTELION-A-CH2018-172643

PATIENT
  Age: 61 Year
  Sex: Female

DRUGS (13)
  1. LANSOPRAZOLE. [Concomitant]
     Active Substance: LANSOPRAZOLE
  2. SAMSCA [Concomitant]
     Active Substance: TOLVAPTAN
  3. OXYGEN. [Concomitant]
     Active Substance: OXYGEN
  4. AMBROXOL HYDROCHLORIDE [Concomitant]
     Active Substance: AMBROXOL HYDROCHLORIDE
  5. REVATIO [Concomitant]
     Active Substance: SILDENAFIL CITRATE
     Indication: PULMONARY ARTERIAL HYPERTENSION
     Dosage: 60 MG, UNK
     Dates: start: 20180409
  6. ATORVASTATIN [Concomitant]
     Active Substance: ATORVASTATIN
  7. AZOSEMIDE [Concomitant]
     Active Substance: AZOSEMIDE
  8. OPSUMIT [Suspect]
     Active Substance: MACITENTAN
     Indication: PULMONARY ARTERIAL HYPERTENSION
     Dosage: 10 MG, OD
     Route: 048
     Dates: start: 20180409, end: 20180606
  9. URSODEOXYCHOLIC ACID [Concomitant]
     Active Substance: URSODIOL
  10. CODEINE PHOSPHATE HEMIHYDRATE [Concomitant]
     Active Substance: CODEINE PHOSPHATE
  11. MAGMITT [Concomitant]
     Active Substance: MAGNESIUM OXIDE
  12. TRAZENTA [Concomitant]
     Active Substance: LINAGLIPTIN
  13. PREDNISOLONE. [Concomitant]
     Active Substance: PREDNISOLONE

REACTIONS (4)
  - Left ventricular failure [Recovering/Resolving]
  - Pulmonary congestion [Recovering/Resolving]
  - Anaemia [Recovered/Resolved]
  - Oedema peripheral [Recovering/Resolving]

NARRATIVE: CASE EVENT DATE: 20180412
